FAERS Safety Report 8758585 (Version 4)
Quarter: 2012Q4

REPORT INFORMATION
  Report Type: 
  Country: JP (occurrence: JP)
  Receive Date: 20120829
  Receipt Date: 20121001
  Transmission Date: 20130627
  Serious: Yes (Life-Threatening, Other)
  Sender: FDA-Public Use
  Company Number: JP-ASTRAZENECA-2012SE64508

PATIENT
  Age: 14319 Day
  Sex: Female
  Weight: 48 kg

DRUGS (3)
  1. CARBOCAIN [Suspect]
     Indication: EPIDURAL ANAESTHESIA
     Route: 008
     Dates: start: 20120822, end: 20120822
  2. SEISHOKU [Concomitant]
     Route: 008
     Dates: start: 20120822, end: 20120822
  3. POTACOL-R [Concomitant]
     Route: 041
     Dates: start: 20120822, end: 20120822

REACTIONS (4)
  - Anaphylactic shock [Recovered/Resolved]
  - Convulsion [Unknown]
  - Pain in extremity [Recovered/Resolved]
  - Hypoaesthesia [Recovered/Resolved]
